FAERS Safety Report 9888801 (Version 1)
Quarter: 2014Q1

REPORT INFORMATION
  Report Type: Spontaneous
  Country: US (occurrence: None)
  Receive Date: 20140210
  Receipt Date: 20140210
  Transmission Date: 20141002
  Serious: Yes (Other)
  Sender: FDA-Public Use
  Company Number: None

PATIENT
  Age: 38 Year
  Sex: Female
  Weight: 68.04 kg

DRUGS (1)
  1. MIRENA [Suspect]
     Dates: start: 20080508, end: 20140121

REACTIONS (4)
  - Alopecia [None]
  - Tooth disorder [None]
  - Self esteem decreased [None]
  - Economic problem [None]
